FAERS Safety Report 20607824 (Version 2)
Quarter: 2022Q2

REPORT INFORMATION
  Report Type: Spontaneous
  Country: US (occurrence: US)
  Receive Date: 20220317
  Receipt Date: 20220515
  Transmission Date: 20220721
  Serious: No
  Sender: FDA-Public Use
  Company Number: US-SA-SAC20220314000907

PATIENT
  Sex: Female
  Weight: 20 kg

DRUGS (2)
  1. KEVZARA [Suspect]
     Active Substance: SARILUMAB
     Indication: Rheumatoid arthritis
     Dosage: 200 MG, QOW
  2. KEVZARA [Suspect]
     Active Substance: SARILUMAB
     Indication: Drug therapy

REACTIONS (5)
  - Gastroenteritis viral [Not Recovered/Not Resolved]
  - Illness [Unknown]
  - Malaise [Unknown]
  - Drug ineffective [Unknown]
  - Product use in unapproved indication [Unknown]
